FAERS Safety Report 6274768-6 (Version None)
Quarter: 2009Q3

REPORT INFORMATION
  Report Type: 
  Country: None (occurrence: None)
  Receive Date: 20090721
  Receipt Date: 20070601
  Transmission Date: 20100115
  Serious: Yes (Hospitalization, Other)
  Sender: FDA-Public Use
  Company Number: US-ASTRAZENECA-2006UW21422

PATIENT
  Age: 404 Month
  Sex: Male
  Weight: 96.6 kg

DRUGS (14)
  1. SEROQUEL [Suspect]
     Indication: HALLUCINATION, AUDITORY
     Dosage: 25-200 MG
     Route: 048
     Dates: start: 20020618
  2. ZYPREXA [Concomitant]
     Dosage: TWO TIMES A DAY
     Route: 048
  3. ADVICOR [Concomitant]
     Route: 048
  4. ASPIRIN [Concomitant]
     Route: 048
  5. LYRICA [Concomitant]
     Route: 048
  6. METHOCARBAMOL [Concomitant]
     Dosage: 500-750 MG
     Route: 048
  7. SINGULAIR [Concomitant]
     Route: 048
  8. NEXIUM [Concomitant]
     Dosage: 20-40 MG ONCE  A DAY
     Route: 048
  9. NOVOLOG [Concomitant]
     Dosage: 100 UNITS / ML
     Route: 058
  10. PREDNISONE [Concomitant]
     Dosage: 10-20 MG
     Route: 048
  11. EMTRICITABINE [Concomitant]
     Dosage: 200-300 MG DAILY
     Route: 048
  12. ADVAIR HFA [Concomitant]
     Dosage: 250-50 MCG 2 PUFFS TWICE DAILY
     Route: 055
  13. AMARYL [Concomitant]
     Route: 048
  14. CYCLOBENZAPRINE [Concomitant]
     Route: 048

REACTIONS (3)
  - DIABETES MELLITUS [None]
  - DIABETIC KETOACIDOSIS [None]
  - DIABETIC NEUROPATHY [None]
